FAERS Safety Report 7692076-3 (Version None)
Quarter: 2011Q3

REPORT INFORMATION
  Report Type: 
  Country: None (occurrence: None)
  Receive Date: 20110818
  Receipt Date: 20110809
  Transmission Date: 20111222
  Serious: Yes (Hospitalization)
  Sender: FDA-Public Use
  Company Number: PHHY2011GB64077

PATIENT
  Age: 78 Year
  Sex: Male

DRUGS (8)
  1. WARFARIN SODIUM [Concomitant]
     Indication: ATRIAL FIBRILLATION
     Route: 048
  2. LACTULOSE [Concomitant]
     Dosage: 15 ML, BID
     Route: 048
  3. FUSIDIC ACID [Suspect]
     Indication: ISCHAEMIC ULCER
     Dosage: 500 MG, TID
     Route: 048
     Dates: start: 20090901, end: 20110605
  4. NOVOMIX [Concomitant]
     Dosage: 34 IU/DAY
     Route: 058
  5. FUROSEMIDE [Concomitant]
     Indication: CARDIAC FAILURE CONGESTIVE
     Dosage: 40 MG, QD
     Route: 048
  6. CLARITHROMYCIN [Suspect]
     Indication: ISCHAEMIC ULCER
     Dosage: 500 MG, BID
     Route: 048
     Dates: start: 20090801, end: 20110606
  7. BISOPROLOL FUMARATE [Concomitant]
     Indication: MYOCARDIAL ISCHAEMIA
     Dosage: 2.5 MG, QD
     Route: 048
  8. ATORVASTATIN [Suspect]
     Indication: MYOCARDIAL ISCHAEMIA
     Dosage: 10 MG, QD
     Route: 048
     Dates: start: 20090101, end: 20110606

REACTIONS (4)
  - RENAL FAILURE ACUTE [None]
  - MUSCULAR WEAKNESS [None]
  - URINARY RETENTION [None]
  - RHABDOMYOLYSIS [None]
